FAERS Safety Report 17021221 (Version 1)
Quarter: 2019Q4

REPORT INFORMATION
  Report Type: Spontaneous
  Country: US (occurrence: US)
  Receive Date: 20191111
  Receipt Date: 20191111
  Transmission Date: 20200122
  Serious: Yes (Hospitalization)
  Sender: FDA-Public Use
  Company Number: None

PATIENT
  Age: 3 Year
  Sex: Female

DRUGS (5)
  1. CLOBAZAM 10MG [Concomitant]
  2. PHENOBARBITAL 15MG [Concomitant]
  3. TOPIRAMATE 25MG [Concomitant]
     Active Substance: TOPIRAMATE
  4. EPIDIOLEX [Suspect]
     Active Substance: CANNABIDIOL
     Indication: EPILEPSY
     Dosage: ?          OTHER ROUTE:GASTRIC TUBE?
     Dates: start: 20190424
  5. CLONAZEPAM ODT 0.125MG [Concomitant]

REACTIONS (3)
  - Pneumonia [None]
  - Blood calcium increased [None]
  - Dehydration [None]

NARRATIVE: CASE EVENT DATE: 20191021
